FAERS Safety Report 5939180-5 (Version None)
Quarter: 2008Q4

REPORT INFORMATION
  Report Type: 
  Country: None (occurrence: None)
  Receive Date: 20081103
  Receipt Date: 20081024
  Transmission Date: 20090506
  Serious: Yes (Other)
  Sender: FDA-Public Use
  Company Number: CO-PFIZER INC-2008045655

PATIENT
  Sex: Female

DRUGS (6)
  1. LIPITOR [Suspect]
     Route: 048
     Dates: start: 20071203, end: 20080201
  2. HYDROCHLOROTHIAZIDE/OLMESARTAN MEDOXOMIL [Suspect]
     Dosage: TEXT:20/12.5MG
     Route: 048
     Dates: start: 20071203, end: 20080201
  3. HYDROCHLOROTHIAZIDE [Concomitant]
     Route: 048
  4. ACETYLSALICYLIC ACID SRT [Concomitant]
     Route: 048
  5. VERPAMIL [Concomitant]
     Route: 048
  6. LOVASTATIN [Concomitant]
     Route: 048

REACTIONS (3)
  - ERYTHEMA [None]
  - FLUSHING [None]
  - PRURITUS [None]
